FAERS Safety Report 14305497 (Version 1)
Quarter: 2017Q4

REPORT INFORMATION
  Report Type: Spontaneous
  Country: JP (occurrence: JP)
  Receive Date: 20171219
  Receipt Date: 20171219
  Transmission Date: 20180321
  Serious: Yes (Life-Threatening, Other)
  Sender: FDA-Public Use
  Company Number: JP-OTSUKA-03100-JPN-06-0473

PATIENT
  Age: 43 Year
  Sex: Female
  Weight: 52 kg

DRUGS (19)
  1. ABILIFY [Suspect]
     Active Substance: ARIPIPRAZOLE
     Dosage: 6 MG, TID
     Route: 048
     Dates: start: 20060908, end: 20060914
  2. LULLAN [Concomitant]
     Active Substance: PEROSPIRONE HYDROCHLORIDE
     Dosage: 8 MG, TID
     Route: 048
     Dates: start: 20060613, end: 20060626
  3. PEROSPIRONE [Concomitant]
     Active Substance: PEROSPIRONE
     Indication: SCHIZOPHRENIA
  4. ABILIFY [Suspect]
     Active Substance: ARIPIPRAZOLE
     Dosage: 6 MG, BID
     Route: 048
     Dates: start: 20060613, end: 20060626
  5. LULLAN [Concomitant]
     Active Substance: PEROSPIRONE HYDROCHLORIDE
     Dosage: 16 MG, TID
     Route: 048
     Dates: start: 20060307, end: 20060612
  6. LULLAN [Concomitant]
     Active Substance: PEROSPIRONE HYDROCHLORIDE
     Dosage: 8 MG, TID
     Route: 048
     Dates: start: 20060908, end: 20060914
  7. SENNA [Concomitant]
     Active Substance: SENNA LEAF\SENNOSIDES\SENNOSIDES A AND B
     Indication: CONSTIPATION
     Dosage: 24 MG, UNK
     Route: 048
     Dates: end: 20060923
  8. CHLORPROMAZINE + PROMETHAZINE [Concomitant]
     Active Substance: CHLORPROMAZINE\PROMETHAZINE
     Indication: INSOMNIA
     Dosage: 1 DF, BID
     Route: 048
     Dates: end: 20060923
  9. LULLAN [Concomitant]
     Active Substance: PEROSPIRONE HYDROCHLORIDE
     Dosage: 8 MG, TID
     Route: 048
     Dates: start: 20060228, end: 20060306
  10. SEPAZON [Concomitant]
     Active Substance: CLOXAZOLAM
     Dosage: 1 MG, BID
     Route: 048
     Dates: end: 20060907
  11. ABILIFY [Suspect]
     Active Substance: ARIPIPRAZOLE
     Dosage: 6 MG, TID
     Route: 048
     Dates: start: 20060627, end: 20060807
  12. CYSVON [Concomitant]
     Active Substance: NITRAZEPAM
     Dosage: 10 MG, QD
     Route: 048
     Dates: end: 20060923
  13. SENEVACUL [Concomitant]
     Active Substance: SENNOSIDES A AND B
     Dosage: 24 MG, QD
     Route: 048
     Dates: end: 20060923
  14. ABILIFY [Suspect]
     Active Substance: ARIPIPRAZOLE
     Dosage: 12 MG, BID
     Route: 048
     Dates: start: 20060808, end: 20060907
  15. LULLAN [Concomitant]
     Active Substance: PEROSPIRONE HYDROCHLORIDE
     Dosage: 4 MG, TID
     Route: 048
     Dates: start: 20060221, end: 20060227
  16. VEGETAMIN A [Concomitant]
     Active Substance: CHLORPROMAZINE HYDROCHLORIDE\PHENOBARBITAL\PROMETHAZINE
     Dosage: 2 DF, QD
     Route: 048
     Dates: end: 20060923
  17. PEROSPIRONE [Concomitant]
     Active Substance: PEROSPIRONE
     Indication: PSYCHIATRIC SYMPTOM
     Dosage: INIT. 12MG, 24MG ON 28-2-06, 48MG ON 7-3-06, 24MG ON 13-6-06, 48MG ON 15-9-06, 24MG ON 3-OCT-06.
     Route: 048
     Dates: start: 20060221
  18. LULLAN [Concomitant]
     Active Substance: PEROSPIRONE HYDROCHLORIDE
     Dosage: 16 MG, TID
     Route: 048
     Dates: start: 20060915, end: 20060923
  19. LULLAN [Concomitant]
     Active Substance: PEROSPIRONE HYDROCHLORIDE
     Dosage: 8 MG, TID
     Route: 048
     Dates: start: 20061003

REACTIONS (3)
  - Neuroleptic malignant syndrome [Recovered/Resolved]
  - Water intoxication [Recovering/Resolving]
  - Altered state of consciousness [Recovering/Resolving]

NARRATIVE: CASE EVENT DATE: 20060923
